FAERS Safety Report 8198232-2 (Version None)
Quarter: 2012Q1

REPORT INFORMATION
  Report Type: 
  Country: None (occurrence: None)
  Receive Date: 20120309
  Receipt Date: 20111214
  Transmission Date: 20120608
  Serious: No
  Sender: FDA-Public Use
  Company Number: US-AMGEN-USASP2011066662

PATIENT
  Age: 79 Year
  Sex: Female

DRUGS (12)
  1. NEURONTIN [Concomitant]
     Dosage: UNK
  2. CALCIUM + VITAMIN D                /01483701/ [Concomitant]
     Dosage: UNK
  3. PROLIA [Suspect]
     Indication: OSTEOPOROSIS POSTMENOPAUSAL
     Dosage: 60 MG, Q6MO
     Dates: start: 20111117
  4. KLOR-CON [Concomitant]
     Dosage: UNK
  5. HYDROCHLOROTHIAZIDE [Concomitant]
     Dosage: UNK
  6. ASPIRIN [Concomitant]
     Dosage: UNK
  7. VERAPAMIL [Concomitant]
     Dosage: UNK
  8. PRAVACHOL [Concomitant]
     Dosage: UNK UNK, QD
  9. XANAX [Concomitant]
     Dosage: UNK
  10. PRILOSEC [Concomitant]
     Dosage: UNK
  11. ALLEGRA [Concomitant]
     Dosage: UNK
  12. COLACE [Concomitant]
     Dosage: UNK

REACTIONS (2)
  - ABDOMINAL PAIN [None]
  - SELF-INDUCED VOMITING [None]
